FAERS Safety Report 15424931 (Version 1)
Quarter: 2018Q3

REPORT INFORMATION
  Report Type: Spontaneous
  Country: US (occurrence: US)
  Receive Date: 20180917
  Receipt Date: 20180917
  Transmission Date: 20181010
  Serious: No
  Sender: FDA-Public Use
  Company Number: None

PATIENT
  Age: 56 Year
  Sex: Female

DRUGS (1)
  1. COPAXONE [Suspect]
     Active Substance: GLATIRAMER ACETATE
     Dates: start: 201001

REACTIONS (4)
  - Cardiac disorder [None]
  - Ejection fraction decreased [None]
  - Back pain [None]
  - Insurance issue [None]

NARRATIVE: CASE EVENT DATE: 20180917
